FAERS Safety Report 11783446 (Version 2)
Quarter: 2015Q4

REPORT INFORMATION
  Report Type: Report from Study
  Country: US (occurrence: US)
  Receive Date: 20151127
  Receipt Date: 20151228
  Transmission Date: 20160305
  Serious: No
  Sender: FDA-Public Use
  Company Number: US-AMGEN-USASL2015120702

PATIENT
  Age: 66 Year
  Sex: Female

DRUGS (1)
  1. ENBREL [Suspect]
     Active Substance: ETANERCEPT
     Indication: RHEUMATOID ARTHRITIS
     Dosage: 50 MG, QWK
     Route: 065
     Dates: start: 20151111

REACTIONS (9)
  - Injection site erythema [Recovered/Resolved]
  - Hypersensitivity [Unknown]
  - Paraesthesia [Unknown]
  - Injection site pruritus [Recovered/Resolved]
  - Injection site reaction [Unknown]
  - Back pain [Unknown]
  - Adverse drug reaction [Unknown]
  - Injection site pain [Unknown]
  - Intentional product misuse [Unknown]

NARRATIVE: CASE EVENT DATE: 2015
